FAERS Safety Report 9908556 (Version 1)
Quarter: 2014Q1

REPORT INFORMATION
  Report Type: Report from Study
  Country: US (occurrence: US)
  Receive Date: 20140219
  Receipt Date: 20140219
  Transmission Date: 20141002
  Serious: Yes (Other)
  Sender: FDA-Public Use
  Company Number: US-ROCHE-1350425

PATIENT
  Age: 76 Year
  Sex: Female

DRUGS (10)
  1. AVASTIN [Suspect]
     Indication: DIABETIC EYE DISEASE
     Dosage: OS
     Route: 065
     Dates: start: 20110908
  2. AVASTIN [Suspect]
     Indication: DIABETIC RETINOPATHY
     Dosage: OD
     Route: 065
     Dates: start: 20120126
  3. AVASTIN [Suspect]
     Indication: DIABETIC RETINAL OEDEMA
  4. AMLODIPINE [Concomitant]
  5. ASPIRIN [Concomitant]
  6. ATENOLOL [Concomitant]
  7. LOSARTAN [Concomitant]
  8. TROPICAMIDE [Concomitant]
     Route: 047
  9. TRIESENCE [Concomitant]
     Route: 065
     Dates: start: 20120730
  10. METFORMIN [Concomitant]
     Route: 065

REACTIONS (6)
  - Diabetic retinal oedema [Unknown]
  - Cataract [Unknown]
  - Ophthalmological examination abnormal [Unknown]
  - Hypermetropia [Unknown]
  - Off label use [Unknown]
  - Astigmatism [Unknown]
